FAERS Safety Report 23875069 (Version 1)
Quarter: 2024Q2

REPORT INFORMATION
  Report Type: Spontaneous
  Country: CN (occurrence: CN)
  Receive Date: 20240520
  Receipt Date: 20240520
  Transmission Date: 20240716
  Serious: Yes (Life-Threatening, Other)
  Sender: FDA-Public Use
  Company Number: None

PATIENT
  Age: 53 Year
  Sex: Female
  Weight: 63 kg

DRUGS (4)
  1. CYCLOPHOSPHAMIDE [Suspect]
     Active Substance: CYCLOPHOSPHAMIDE
     Indication: Breast cancer female
     Dosage: 900 MG, ONE TIME IN ONE DAY, D1, DILUTED WITH 100 ML OF 0.9% SODIUM CHLORIDE, AFTER 1 CYCLE OF CHEMO
     Route: 041
     Dates: start: 20240502, end: 20240502
  2. SODIUM CHLORIDE [Suspect]
     Active Substance: SODIUM CHLORIDE
     Indication: Medication dilution
     Dosage: 100 ML, ONE TIME IN ONE DAY, D1, USED TO DILUTE 900 MG OF CYCLOPHOSPHAMIDE, AFTER 1 CYCLE OF CHEMOTH
     Route: 041
     Dates: start: 20240502, end: 20240502
  3. SODIUM CHLORIDE [Suspect]
     Active Substance: SODIUM CHLORIDE
     Dosage: 250 ML, ONE TIME IN ONE DAY, D1, USED TO DILUTE 120 MG OF DOCETAXEL, AFTER 1 CYCLE OF CHEMOTHERAPY (
     Route: 041
     Dates: start: 20240502, end: 20240502
  4. DOCETAXEL [Suspect]
     Active Substance: DOCETAXEL\DOCETAXEL ANHYDROUS
     Indication: Breast cancer female
     Dosage: 120 MG, ONE TIME IN ONE DAY, D1, DILUTED WITH 250 ML OF 0.9% SODIUM CHLORIDE, AFTER 1 CYCLE OF CHEMO
     Route: 041
     Dates: start: 20240502, end: 20240502

REACTIONS (1)
  - Myelosuppression [Recovered/Resolved]

NARRATIVE: CASE EVENT DATE: 20240510
